FAERS Safety Report 9648158 (Version 4)
Quarter: 2013Q4

REPORT INFORMATION
  Report Type: Report from Study
  Country: US (occurrence: US)
  Receive Date: 20131028
  Receipt Date: 20131203
  Transmission Date: 20140711
  Serious: Yes (Hospitalization)
  Sender: FDA-Public Use
  Company Number: PHEH2013US019994

PATIENT
  Sex: Female
  Weight: 83.9 kg

DRUGS (1)
  1. GILENYA [Suspect]
     Indication: MULTIPLE SCLEROSIS
     Dosage: 0.5 MG, QD
     Route: 048
     Dates: start: 20130903, end: 20131002

REACTIONS (9)
  - Pollakiuria [Not Recovered/Not Resolved]
  - Multiple sclerosis relapse [Unknown]
  - Gait disturbance [Not Recovered/Not Resolved]
  - Movement disorder [Unknown]
  - General physical health deterioration [Not Recovered/Not Resolved]
  - Malaise [Unknown]
  - Asthenia [Unknown]
  - Stress [Unknown]
  - Fall [Unknown]
